FAERS Safety Report 9203583 (Version 3)
Quarter: 2013Q4

REPORT INFORMATION
  Report Type: Spontaneous
  Country: JP (occurrence: JP)
  Receive Date: 20130402
  Receipt Date: 20131206
  Transmission Date: 20140711
  Serious: Yes (Death, Other)
  Sender: FDA-Public Use
  Company Number: PHHY2013JP031028

PATIENT
  Age: 38 Year
  Sex: Female

DRUGS (3)
  1. SANDIMMUN [Suspect]
     Indication: BONE MARROW TRANSPLANT
     Dosage: 50 MG, PER DAY
     Route: 042
     Dates: end: 20120107
  2. SANDIMMUN [Suspect]
     Indication: PROPHYLAXIS AGAINST GRAFT VERSUS HOST DISEASE
     Dosage: 40 MG, DAILY
     Route: 042
     Dates: start: 20120108, end: 20120123
  3. TACROLIMUS [Suspect]
     Dosage: 2 MG, PER DAY

REACTIONS (5)
  - Leukoencephalopathy [Fatal]
  - Acute disseminated encephalomyelitis [Fatal]
  - Altered state of consciousness [Fatal]
  - Clonic convulsion [Fatal]
  - Acute graft versus host disease [Unknown]
